FAERS Safety Report 5251466-9 (Version None)
Quarter: 2007Q1

REPORT INFORMATION
  Report Type: 
  Country: None (occurrence: None)
  Receive Date: 20070228
  Receipt Date: 20060526
  Transmission Date: 20070707
  Serious: No
  Sender: FDA-Public Use
  Company Number: US-GLAXOSMITHKLINE-A0605413A

PATIENT
  Age: 8 Year
  Sex: Female
  Weight: 26.4 kg

DRUGS (2)
  1. LAMICTAL [Suspect]
     Indication: DRUG USE FOR UNKNOWN INDICATION
     Dosage: 12.5MG UNKNOWN
     Route: 048
     Dates: start: 20060101, end: 20060101
  2. DYE [Suspect]
     Indication: DIAGNOSTIC PROCEDURE
     Route: 042

REACTIONS (1)
  - RASH GENERALISED [None]
